FAERS Safety Report 7970993-4 (Version None)
Quarter: 2011Q4

REPORT INFORMATION
  Report Type: 
  Country: None (occurrence: None)
  Receive Date: 20111212
  Receipt Date: 20111130
  Transmission Date: 20120403
  Serious: Yes (Death, Other)
  Sender: FDA-Public Use
  Company Number: JP-BRISTOL-MYERS SQUIBB COMPANY-16269946

PATIENT
  Age: 31 Year
  Sex: Male

DRUGS (7)
  1. STAVUDINE [Suspect]
     Indication: HIV INFECTION
     Dosage: ART THERAPY 14 YEARS INCLUDING INTERRUPTION PERIOD
  2. LAMIVUDINE [Suspect]
     Indication: HIV INFECTION
     Dosage: ART THERAPY 14 YEARS INCLUDING INTERRUPTION PERIOD
  3. LOPINAVIR [Suspect]
     Indication: HIV INFECTION
     Dosage: ART THERAPY 14 YEARS INCLUDING INTERRUPTION PERIOD
  4. EFAVIRENZ [Suspect]
     Indication: HIV INFECTION
     Dosage: ART THERAPY 14 YEARS INCLUDING INTERRUPTION PERIOD
  5. RITONAVIR [Suspect]
     Indication: HIV INFECTION
  6. ATAZANAVIR [Suspect]
     Indication: HIV INFECTION
     Dosage: ART THERAPY 14 YEARS INCLUDING INTERRUPTION PERIOD
  7. RALTEGRAVIR [Suspect]
     Indication: HIV INFECTION
     Dosage: ART THERAPY 14 YEARS INCLUDING INTERRUPTION PERIOD

REACTIONS (2)
  - AORTIC ANEURYSM RUPTURE [None]
  - ARTERIOSCLEROSIS [None]
